FAERS Safety Report 17966317 (Version 2)
Quarter: 2024Q3

REPORT INFORMATION
  Report Type: Spontaneous
  Country: ES (occurrence: ES)
  Receive Date: 20200701
  Receipt Date: 20240809
  Transmission Date: 20241016
  Serious: Yes (Other)
  Sender: AMGEN
  Company Number: ES-AEMPS-630518

PATIENT
  Age: 58 Year
  Sex: Female
  Weight: 52 kg

DRUGS (1)
  1. AIMOVIG [Suspect]
     Active Substance: ERENUMAB-AOOE
     Indication: Migraine
     Dosage: UNK (INJECTION ONCE A MONTH 70 MG INJECTABLE SOLUTION IN PRE-FILLED PEN, 1 PRE-FILLED PEN OF 1ML)
     Route: 058
     Dates: start: 20200208

REACTIONS (3)
  - Dysphagia [Recovering/Resolving]
  - Pain in extremity [Recovering/Resolving]
  - Chest pain [Recovering/Resolving]

NARRATIVE: CASE EVENT DATE: 20200304
